FAERS Safety Report 12297362 (Version 3)
Quarter: 2020Q4

REPORT INFORMATION
  Report Type: Report from Study
  Country: US (occurrence: US)
  Receive Date: 20160422
  Receipt Date: 20201215
  Transmission Date: 20210113
  Serious: Yes (Hospitalization, Other)
  Sender: FDA-Public Use
  Company Number: US-AMGEN-USASL2016050451

PATIENT
  Age: 58 Year
  Sex: Male

DRUGS (3)
  1. ENBREL [Suspect]
     Active Substance: ETANERCEPT
     Indication: RHEUMATOID ARTHRITIS
     Dosage: 50 MG, QWK
     Route: 065
     Dates: start: 20080101, end: 200806
  2. ENBREL [Suspect]
     Active Substance: ETANERCEPT
     Dosage: UNK
     Route: 065
  3. ADVIL [Concomitant]
     Active Substance: IBUPROFEN
     Dosage: UNK, ONCE IN WHILE

REACTIONS (14)
  - Joint swelling [Not Recovered/Not Resolved]
  - Musculoskeletal disorder [Unknown]
  - Arthritis [Unknown]
  - Pain in extremity [Unknown]
  - Knee arthroplasty [Unknown]
  - Shoulder arthroplasty [Unknown]
  - Arthropathy [Unknown]
  - Pain [Not Recovered/Not Resolved]
  - Ear disorder [Unknown]
  - Inflammation [Unknown]
  - Arthralgia [Unknown]
  - Hip arthroplasty [Unknown]
  - Chondropathy [Unknown]
  - Depression [Unknown]

NARRATIVE: CASE EVENT DATE: 201410
